FAERS Safety Report 25333324 (Version 1)
Quarter: 2025Q2

REPORT INFORMATION
  Report Type: Report from Study
  Country: US (occurrence: US)
  Receive Date: 20250519
  Receipt Date: 20250519
  Transmission Date: 20250716
  Serious: Yes (Other)
  Sender: ABBVIE
  Company Number: US-ABBVIE-6114574

PATIENT
  Age: 29 Year
  Sex: Female

DRUGS (1)
  1. RINVOQ [Suspect]
     Active Substance: UPADACITINIB
     Indication: Crohn^s disease
     Route: 048
     Dates: start: 20240819, end: 20250228

REACTIONS (6)
  - Sepsis [Recovering/Resolving]
  - Malabsorption [Not Recovered/Not Resolved]
  - Gastrointestinal disorder [Unknown]
  - Animal bite [Recovering/Resolving]
  - Staphylococcal infection [Recovered/Resolved]
  - Product residue present [Not Recovered/Not Resolved]

NARRATIVE: CASE EVENT DATE: 20240819
